FAERS Safety Report 4857124-4 (Version None)
Quarter: 2005Q4

REPORT INFORMATION
  Report Type: 
  Country: None (occurrence: None)
  Receive Date: 20051219
  Receipt Date: 20050706
  Transmission Date: 20060501
  Serious: No
  Sender: FDA-Public Use
  Company Number: US-GLAXOSMITHKLINE-A0565122A

PATIENT
  Age: 49 Year
  Sex: Male

DRUGS (2)
  1. NICODERM CQ [Suspect]
     Dates: start: 20050701
  2. NICORETTE [Suspect]
     Dates: start: 20050701, end: 20050701

REACTIONS (5)
  - HEADACHE [None]
  - NAUSEA [None]
  - ORAL DISCOMFORT [None]
  - PRODUCTIVE COUGH [None]
  - TOOTHACHE [None]
